FAERS Safety Report 9600946 (Version 2)
Quarter: 2013Q4

REPORT INFORMATION
  Report Type: Spontaneous
  Country: US (occurrence: US)
  Receive Date: 20131004
  Receipt Date: 20131004
  Transmission Date: 20140711
  Serious: No
  Sender: FDA-Public Use
  Company Number: US-AMGEN-USASP2013033765

PATIENT
  Age: 64 Year
  Sex: Male

DRUGS (4)
  1. ENBREL [Suspect]
     Indication: PSORIASIS
     Dosage: 50 MG, 2 TIMES/WK
     Route: 065
     Dates: start: 20130110
  2. CLOBEX                             /00337102/ [Concomitant]
     Dosage: UNK UNK, QD
  3. OMEPRAZOLE [Concomitant]
     Dosage: 20 MG, UNK
     Route: 048
  4. QUINAPRIL [Concomitant]
     Dosage: UNK

REACTIONS (2)
  - Skin plaque [Not Recovered/Not Resolved]
  - Erythema [Unknown]
